FAERS Safety Report 7743904-4 (Version None)
Quarter: 2011Q3

REPORT INFORMATION
  Report Type: 
  Country: None (occurrence: None)
  Receive Date: 20110912
  Receipt Date: 20110906
  Transmission Date: 20111222
  Serious: Yes (Other)
  Sender: FDA-Public Use
  Company Number: CA-GLAXOSMITHKLINE-A0944113A

PATIENT
  Sex: Male

DRUGS (1)
  1. ZYBAN [Suspect]
     Indication: SMOKING CESSATION THERAPY
     Dosage: 150MG UNKNOWN

REACTIONS (5)
  - CHEST DISCOMFORT [None]
  - DISABILITY [None]
  - CARDIAC ARREST [None]
  - ABASIA [None]
  - CARDIAC DISORDER [None]
